FAERS Safety Report 19613600 (Version 1)
Quarter: 2021Q3

REPORT INFORMATION
  Report Type: Spontaneous
  Country: US (occurrence: US)
  Receive Date: 20210727
  Receipt Date: 20210727
  Transmission Date: 20211014
  Serious: Yes (Hospitalization, Disabling, Other)
  Sender: FDA-Public Use
  Company Number: None

PATIENT
  Age: 60 Year
  Sex: Male
  Weight: 90.45 kg

DRUGS (5)
  1. METFORMIN [Suspect]
     Active Substance: METFORMIN HYDROCHLORIDE
     Indication: DIABETES MELLITUS
     Dosage: ?          QUANTITY:30 TABLET(S);?
     Route: 048
     Dates: start: 20210713, end: 20210725
  2. VITAMIN B12 [Concomitant]
     Active Substance: CYANOCOBALAMIN
  3. ATORVASTATIN 20MG [Concomitant]
     Active Substance: ATORVASTATIN
  4. ZINC. [Concomitant]
     Active Substance: ZINC
  5. L?ARGININE 1500MG [Concomitant]

REACTIONS (2)
  - Urine odour abnormal [None]
  - Blood urine present [None]

NARRATIVE: CASE EVENT DATE: 20210726
